FAERS Safety Report 21911077 (Version 2)
Quarter: 2023Q1

REPORT INFORMATION
  Report Type: Report from Study
  Country: NL (occurrence: NL)
  Receive Date: 20230125
  Receipt Date: 20230215
  Transmission Date: 20230418
  Serious: Yes (Other)
  Sender: FDA-Public Use
  Company Number: NL-ABBVIE-4280959

PATIENT
  Sex: Female

DRUGS (8)
  1. CARBIDOPA\LEVODOPA [Suspect]
     Active Substance: CARBIDOPA\LEVODOPA
     Indication: Parkinson^s disease
     Dosage: MD: 5,9ML
     Route: 050
  2. CARBIDOPA\LEVODOPA [Suspect]
     Active Substance: CARBIDOPA\LEVODOPA
     Dosage: DURATION TEXT: REMAINS AT 16 HOURS
     Route: 050
     Dates: start: 20211123
  3. CARBIDOPA\LEVODOPA [Suspect]
     Active Substance: CARBIDOPA\LEVODOPA
     Dosage: MD: 5,9ML;CD: 2.5ML/H; ED: 1.7ML
     Route: 050
  4. Levodopa 125 Milligram [Concomitant]
     Indication: Parkinson^s disease
     Route: 048
  5. Levodopa 125 Milligram [Concomitant]
     Indication: Parkinson^s disease
     Route: 048
  6. Entacapone 200 Milligram [Concomitant]
     Indication: Parkinson^s disease
     Route: 065
  7. Entacapone 200 Milligram [Concomitant]
     Indication: Parkinson^s disease
     Route: 048
  8. Deep brain stimulator [Concomitant]
     Indication: Parkinson^s disease

REACTIONS (12)
  - Rehabilitation therapy [Recovered/Resolved]
  - Restlessness [Not Recovered/Not Resolved]
  - On and off phenomenon [Not Recovered/Not Resolved]
  - Freezing phenomenon [Not Recovered/Not Resolved]
  - Dystonia [Not Recovered/Not Resolved]
  - Tension [Not Recovered/Not Resolved]
  - Muscle rigidity [Not Recovered/Not Resolved]
  - Dyskinesia [Recovering/Resolving]
  - Mobility decreased [Not Recovered/Not Resolved]
  - Muscle spasms [Not Recovered/Not Resolved]
  - Somnolence [Not Recovered/Not Resolved]
  - Fine motor skill dysfunction [Unknown]
